FAERS Safety Report 13546766 (Version 1)
Quarter: 2017Q2

REPORT INFORMATION
  Report Type: Spontaneous
  Country: DE (occurrence: DE)
  Receive Date: 20170515
  Receipt Date: 20170515
  Transmission Date: 20170830
  Serious: Yes (Hospitalization, Disabling)
  Sender: FDA-Public Use
  Company Number: DE-GUERBET-DE-20160031

PATIENT
  Sex: Male
  Weight: 86 kg

DRUGS (1)
  1. DOTAREM [Suspect]
     Active Substance: GADOTERATE MEGLUMINE
     Indication: NUCLEAR MAGNETIC RESONANCE IMAGING RENAL
     Route: 042
     Dates: start: 20150708, end: 20150708

REACTIONS (5)
  - Myalgia [Unknown]
  - Musculoskeletal stiffness [Unknown]
  - Somnolence [Unknown]
  - Exercise tolerance decreased [Unknown]
  - Skin discomfort [Unknown]

NARRATIVE: CASE EVENT DATE: 2015
